FAERS Safety Report 19381938 (Version 1)
Quarter: 2021Q2

REPORT INFORMATION
  Report Type: Spontaneous
  Country: US (occurrence: US)
  Receive Date: 20210607
  Receipt Date: 20210607
  Transmission Date: 20210717
  Serious: No
  Sender: FDA-Public Use
  Company Number: US-ALVOGEN-2021-ALVOGEN-116669

PATIENT
  Sex: Female

DRUGS (1)
  1. ACETYLCYSTEINE. [Suspect]
     Active Substance: ACETYLCYSTEINE
     Indication: PRODUCT USED FOR UNKNOWN INDICATION
     Dosage: TWO TIMES A DAY
     Route: 055
     Dates: start: 202102

REACTIONS (3)
  - Dry mouth [Not Recovered/Not Resolved]
  - Stomatitis [Not Recovered/Not Resolved]
  - Accidental exposure to product [Unknown]

NARRATIVE: CASE EVENT DATE: 202102
